FAERS Safety Report 4363397-7 (Version None)
Quarter: 2004Q2

REPORT INFORMATION
  Report Type: 
  Country: None (occurrence: None)
  Receive Date: 20040524
  Receipt Date: 20040519
  Transmission Date: 20050107
  Serious: Yes (Hospitalization, Other)
  Sender: FDA-Public Use
  Company Number: DEPFP-S-20040016

PATIENT
  Age: 69 Year
  Sex: Female

DRUGS (4)
  1. NAVELBINE [Suspect]
     Indication: CARCINOMA
     Dosage: 25MGM2 PER DAY
     Route: 042
     Dates: start: 20030915, end: 20030915
  2. CARBOPLATINE [Suspect]
  3. PACLITAXEL [Suspect]
  4. GEMCITABINE [Concomitant]
     Dates: start: 20030915, end: 20030915

REACTIONS (3)
  - ANAEMIA [None]
  - DYSPNOEA EXERTIONAL [None]
  - PLEURAL EFFUSION [None]
